FAERS Safety Report 20638760 (Version 3)
Quarter: 2022Q2

REPORT INFORMATION
  Report Type: Spontaneous
  Country: US (occurrence: US)
  Receive Date: 20220325
  Receipt Date: 20220613
  Transmission Date: 20220721
  Serious: No
  Sender: FDA-Public Use
  Company Number: US-NOVARTISTESTPH-NVSC2022US068512

PATIENT
  Sex: Female

DRUGS (2)
  1. TAFINLAR [Suspect]
     Active Substance: DABRAFENIB MESYLATE
     Indication: Thyroid cancer
     Dosage: 150 MG, BID
     Route: 065
     Dates: start: 20220309
  2. TAFINLAR [Suspect]
     Active Substance: DABRAFENIB MESYLATE
     Dosage: 150 MG, Q12H
     Route: 048
     Dates: start: 202203

REACTIONS (7)
  - Affective disorder [Unknown]
  - Fatigue [Unknown]
  - Skin papilloma [Unknown]
  - Rash [Unknown]
  - Mood swings [Unknown]
  - Mental disorder [Unknown]
  - Anger [Unknown]
